FAERS Safety Report 17928059 (Version 5)
Quarter: 2022Q3

REPORT INFORMATION
  Report Type: Spontaneous
  Country: JP (occurrence: JP)
  Receive Date: 20200623
  Receipt Date: 20220714
  Transmission Date: 20221027
  Serious: Yes (Hospitalization, Other)
  Sender: FDA-Public Use
  Company Number: JP-GLAXOSMITHKLINE-JP2020JPN104751

PATIENT

DRUGS (10)
  1. FLUTICASONE FUROATE\VILANTEROL TRIFENATATE [Suspect]
     Active Substance: FLUTICASONE FUROATE\VILANTEROL TRIFENATATE
     Indication: Asthma
     Dosage: 200 ?G, QD
     Route: 055
     Dates: start: 20190611
  2. MONTELUKAST SODIUM [Concomitant]
     Active Substance: MONTELUKAST SODIUM
     Indication: Asthma
     Dosage: 10 MG, QD
     Route: 048
     Dates: start: 20200611
  3. LOXOPROFEN SODIUM [Concomitant]
     Active Substance: LOXOPROFEN SODIUM
     Dosage: 60 MG, PRN
  4. ROSUVASTATIN CALCIUM [Concomitant]
     Active Substance: ROSUVASTATIN CALCIUM
     Dosage: 2.5 MG, QD IN THE MORNING
  5. DILTIAZEM HYDROCHLORIDE SUSTAINED RELEASE CAPSULES [Concomitant]
     Dosage: 1 DF, QD IN THE MORNING
     Dates: start: 20190611
  6. MAGNESIUM OXIDE [Concomitant]
     Active Substance: MAGNESIUM OXIDE
     Dosage: 330 MG, TID (MORNING, AFTERNOON, NIGHT)
     Dates: start: 20190611
  7. PANTETHINE [Concomitant]
     Active Substance: PANTETHINE
     Dosage: 200 MG, TID  (MORNING, AFTERNOON, NIGHT)
     Dates: start: 20190611
  8. DIETARY SUPPLEMENT\PROBIOTICS [Concomitant]
     Active Substance: DIETARY SUPPLEMENT\PROBIOTICS
     Dosage: 1 DF, TID (MORNING, AFTERNOON, NIGHT)
     Dates: start: 20190611
  9. NICORANDIL [Concomitant]
     Active Substance: NICORANDIL
     Dosage: 5 MG, TID (MORNING, AFTERNOON, NIGHT)
     Dates: start: 20200201
  10. ISOSORBIDE DINITRATE [Concomitant]
     Active Substance: ISOSORBIDE DINITRATE
     Dosage: 1 DF, BID  (MORNING AND EVENING)
     Dates: start: 20200201

REACTIONS (6)
  - Prinzmetal angina [Unknown]
  - Acute myocardial infarction [Unknown]
  - Asthma [Recovered/Resolved]
  - Wheezing [Unknown]
  - Cough [Unknown]
  - Dyspnoea [Unknown]

NARRATIVE: CASE EVENT DATE: 20190622
